FAERS Safety Report 7274938-4 (Version None)
Quarter: 2011Q1

REPORT INFORMATION
  Report Type: 
  Country: None (occurrence: None)
  Receive Date: 20110204
  Receipt Date: 20110124
  Transmission Date: 20110831
  Serious: Yes (Other)
  Sender: FDA-Public Use
  Company Number: US-JNJFOC-20110106594

PATIENT
  Sex: Female
  Weight: 54.43 kg

DRUGS (3)
  1. EXTRA STRENGTH TYLENOL [Suspect]
     Route: 048
  2. EXTRA STRENGTH TYLENOL [Suspect]
     Indication: PYREXIA
     Route: 048
  3. ADVIL [Suspect]
     Indication: PYREXIA

REACTIONS (2)
  - HEPATITIS [None]
  - PRODUCT QUALITY ISSUE [None]
